FAERS Safety Report 5955961-6 (Version None)
Quarter: 2008Q4

REPORT INFORMATION
  Report Type: 
  Country: None (occurrence: None)
  Receive Date: 20081112
  Receipt Date: 20081030
  Transmission Date: 20090506
  Serious: Yes (Hospitalization)
  Sender: FDA-Public Use
  Company Number: 230227J07USA

PATIENT
  Age: 30 Year
  Sex: Female

DRUGS (5)
  1. REBIF [Suspect]
     Indication: MULTIPLE SCLEROSIS
     Dosage: 3 IN 1 WEEKS;  44 MCG, 3 IN 1 WEEKS, SUBCUTANEOUS
     Route: 058
     Dates: start: 20070101, end: 20070901
  2. REBIF [Suspect]
     Indication: MULTIPLE SCLEROSIS
     Dosage: 3 IN 1 WEEKS;  44 MCG, 3 IN 1 WEEKS, SUBCUTANEOUS
     Route: 058
     Dates: start: 20071101
  3. SEPTRA DS [Suspect]
     Indication: PROPHYLAXIS
     Dates: start: 20060101, end: 20070901
  4. CLARITIN OVER THE COUNTER (LORATADINE) [Concomitant]
  5. DITROPAN XL (OXYBUTYNIN /00538901/) [Concomitant]

REACTIONS (4)
  - COAGULOPATHY [None]
  - EOSINOPHIL COUNT DECREASED [None]
  - HEADACHE [None]
  - LYMPHADENOPATHY [None]
